FAERS Safety Report 7153085-6 (Version None)
Quarter: 2010Q4

REPORT INFORMATION
  Report Type: 
  Country: None (occurrence: None)
  Receive Date: 20101209
  Receipt Date: 20101209
  Transmission Date: 20110411
  Serious: Yes (Other)
  Sender: FDA-Public Use
  Company Number: None

PATIENT
  Sex: Female

DRUGS (1)
  1. WELLBUTRIN XL [Suspect]
     Indication: DEPRESSION
     Dosage: 300MG QD PO   TAKEN MED SEVERAL YEARS CAN'T TOLERATE GENERIC MUST BE BRAND NAME
     Route: 048

REACTIONS (5)
  - CRYING [None]
  - DRUG INEFFECTIVE [None]
  - HEADACHE [None]
  - NAUSEA [None]
  - PRODUCT SUBSTITUTION ISSUE [None]
